FAERS Safety Report 23123083 (Version 3)
Quarter: 2023Q4

REPORT INFORMATION
  Report Type: Spontaneous
  Country: US (occurrence: None)
  Receive Date: 20231030
  Receipt Date: 20231212
  Transmission Date: 20240110
  Serious: Yes (Other)
  Sender: FDA-Public Use
  Company Number: 2023A242621

PATIENT
  Sex: Female

DRUGS (1)
  1. FASENRA [Suspect]
     Active Substance: BENRALIZUMAB
     Indication: Asthma
     Dosage: 30.0MG AS REQUIRED
     Route: 058
     Dates: start: 202306, end: 202308

REACTIONS (5)
  - Butterfly rash [Unknown]
  - Fatigue [Unknown]
  - Malaise [Unknown]
  - Autoimmune disorder [Unknown]
  - Systemic lupus erythematosus [Unknown]

NARRATIVE: CASE EVENT DATE: 20230601
